FAERS Safety Report 5344223-6 (Version None)
Quarter: 2007Q2

REPORT INFORMATION
  Report Type: 
  Country: None (occurrence: None)
  Receive Date: 20070531
  Receipt Date: 20070531
  Transmission Date: 20071010
  Serious: Yes (Hospitalization)
  Sender: FDA-Public Use
  Company Number: None

PATIENT
  Age: 84 Year
  Sex: Female

DRUGS (11)
  1. REQUIP [Suspect]
     Indication: RESTLESS LEGS SYNDROME
     Dosage: PO
  2. PREVACID [Concomitant]
  3. ACCUPRIL [Concomitant]
  4. COREG [Concomitant]
  5. ZOCOR [Concomitant]
  6. PLAVIX [Concomitant]
  7. ASPIRIN [Concomitant]
  8. GABAPENTIN [Concomitant]
  9. DARVOCET [Concomitant]
  10. REQUIP [Concomitant]
  11. ULTRAM [Concomitant]

REACTIONS (6)
  - BLOOD PRESSURE DECREASED [None]
  - BLOOD PRESSURE SYSTOLIC INCREASED [None]
  - BUNDLE BRANCH BLOCK [None]
  - CARDIOVASCULAR DISORDER [None]
  - HEART RATE DECREASED [None]
  - SYNCOPE [None]
